FAERS Safety Report 8311443-8 (Version None)
Quarter: 2012Q2

REPORT INFORMATION
  Report Type: 
  Country: None (occurrence: None)
  Receive Date: 20120423
  Receipt Date: 20120412
  Transmission Date: 20120825
  Serious: Yes (Other)
  Sender: FDA-Public Use
  Company Number: US-1187540

PATIENT
  Sex: Female

DRUGS (2)
  1. GENTAMICIN SULFATE [Suspect]
     Indication: CATARACT OPERATION
     Dosage: (INTRAOCULAR)
     Route: 031
  2. VANCOMYCIN [Concomitant]

REACTIONS (4)
  - IRIS DISORDER [None]
  - CORNEAL OEDEMA [None]
  - PUPIL FIXED [None]
  - INCORRECT ROUTE OF DRUG ADMINISTRATION [None]
